FAERS Safety Report 9293020 (Version 1)
Quarter: 2013Q2

REPORT INFORMATION
  Report Type: Spontaneous
  Country: US (occurrence: None)
  Receive Date: 20130515
  Receipt Date: 20130515
  Transmission Date: 20140414
  Serious: Yes (Hospitalization)
  Sender: FDA-Public Use
  Company Number: None

PATIENT
  Age: 52 Year
  Sex: Female
  Weight: 82 kg

DRUGS (5)
  1. PIROXICAM [Suspect]
     Indication: ARTHRALGIA
     Dosage: CHRONIC MED, BUT UNKNOWN
     Route: 048
  2. ASPIRIN [Suspect]
     Dosage: CHRONIC MED, BUT UNKNOWN
     Route: 048
  3. ADVIL [Concomitant]
  4. LISINOPRIL [Concomitant]
  5. VITAMIN D [Concomitant]

REACTIONS (5)
  - Anaemia [None]
  - Helicobacter test positive [None]
  - Duodenal ulcer [None]
  - Gastric ulcer [None]
  - Upper gastrointestinal haemorrhage [None]
